FAERS Safety Report 8614736-X (Version None)
Quarter: 2012Q3

REPORT INFORMATION
  Report Type: 
  Country: None (occurrence: None)
  Receive Date: 20120823
  Receipt Date: 20120820
  Transmission Date: 20120928
  Serious: Yes (Other)
  Sender: FDA-Public Use
  Company Number: CN-ABBOTT-12P-035-0970976-00

PATIENT
  Age: 3 Year
  Sex: Male

DRUGS (2)
  1. DEPAKENE [Suspect]
     Indication: EPILEPSY
     Route: 048
     Dates: start: 20120301, end: 20120801
  2. DEPAKENE [Suspect]
     Route: 048
     Dates: start: 20120801, end: 20120815

REACTIONS (4)
  - EPILEPSY [None]
  - CONFUSIONAL STATE [None]
  - TRISMUS [None]
  - CONVULSION [None]
